FAERS Safety Report 5484503-7 (Version None)
Quarter: 2007Q4

REPORT INFORMATION
  Report Type: 
  Country: None (occurrence: None)
  Receive Date: 20071010
  Receipt Date: 20070925
  Transmission Date: 20080405
  Serious: Yes (Death)
  Sender: FDA-Public Use
  Company Number: 147

PATIENT
  Age: 52 Year
  Sex: Male

DRUGS (1)
  1. FAZACLO ODT [Suspect]
     Dosage: 100 MG PO DAILY
     Route: 048
     Dates: start: 20070605, end: 20070901

REACTIONS (1)
  - DEATH [None]
